FAERS Safety Report 5807643-9 (Version None)
Quarter: 2008Q3

REPORT INFORMATION
  Report Type: 
  Country: None (occurrence: None)
  Receive Date: 20080711
  Receipt Date: 20080515
  Transmission Date: 20090109
  Serious: Yes (Death, Hospitalization)
  Sender: FDA-Public Use
  Company Number: CA-ROCHE-559517

PATIENT
  Age: 48 Year
  Sex: Male

DRUGS (12)
  1. NAPROXEN [Suspect]
     Route: 065
  2. TENOFOVIR [Suspect]
     Indication: HIV INFECTION
     Route: 065
  3. DIDANOSINE [Suspect]
     Indication: HIV INFECTION
     Route: 065
  4. FUROSEMIDE [Suspect]
     Indication: ASCITES
     Route: 065
  5. SPIRONOLACTONE [Suspect]
     Indication: ASCITES
     Route: 065
  6. LOPINAVIR [Concomitant]
     Indication: HIV INFECTION
  7. RITONAVIR [Concomitant]
     Indication: HIV INFECTION
  8. CO-TRIMOXAZOLE [Concomitant]
  9. HYDROMORPHONE HCL [Concomitant]
  10. QUININE [Concomitant]
  11. OMEPRAZOLE [Concomitant]
  12. DIMENHYDRINATE [Concomitant]

REACTIONS (1)
  - RENAL TUBULAR NECROSIS [None]
